FAERS Safety Report 21338400 (Version 2)
Quarter: 2023Q1

REPORT INFORMATION
  Report Type: Spontaneous
  Country: US (occurrence: US)
  Receive Date: 20220915
  Receipt Date: 20230201
  Transmission Date: 20230417
  Serious: Yes (Death, Life-Threatening, Hospitalization, Other)
  Sender: FDA-Public Use
  Company Number: US-AMGEN-USASP2022157062

PATIENT

DRUGS (3)
  1. TRASTUZUMAB [Suspect]
     Active Substance: TRASTUZUMAB
     Indication: HER2 positive breast cancer
     Dosage: 25 MILLIGRAM/SQ. METER (ON DAYS 1/8 OF A 21-DAY CYCLE WITH 4 PLANNED CYCLES)
     Route: 065
  2. VINORELBINE [Suspect]
     Active Substance: VINORELBINE TARTRATE
     Indication: HER2 positive breast cancer
     Dosage: 25 MILLIGRAM/SQ. METER (ON DAYS 1/8 OF A 21-DAY CYCLE WITH 4 PLANNED CYCLES)
     Route: 065
  3. PACLITAXEL [Concomitant]
     Active Substance: PACLITAXEL

REACTIONS (16)
  - Death [Fatal]
  - Neutropenia [Unknown]
  - Colitis ulcerative [Unknown]
  - Toxicity to various agents [Unknown]
  - Chills [Unknown]
  - Pyrexia [Unknown]
  - Diarrhoea [Unknown]
  - Breast cancer recurrent [Unknown]
  - Ankle fracture [Unknown]
  - Anaemia [Unknown]
  - Neuropathy peripheral [Unknown]
  - Transaminases increased [Unknown]
  - Abdominal discomfort [Unknown]
  - Rash [Unknown]
  - Mucosal inflammation [Unknown]
  - Nausea [Unknown]
